FAERS Safety Report 7034676-X (Version None)
Quarter: 2010Q4

REPORT INFORMATION
  Report Type: 
  Country: None (occurrence: None)
  Receive Date: 20101008
  Receipt Date: 20100923
  Transmission Date: 20110411
  Serious: Yes (Hospitalization)
  Sender: FDA-Public Use
  Company Number: PHHY2010BR66548

PATIENT
  Age: 66 Year
  Sex: Male

DRUGS (1)
  1. VALSARTAN [Suspect]
     Dosage: 320 MG

REACTIONS (3)
  - ARTERIAL OCCLUSIVE DISEASE [None]
  - ERYSIPELAS [None]
  - ULCER [None]
